FAERS Safety Report 7996427-1 (Version None)
Quarter: 2011Q4

REPORT INFORMATION
  Report Type: 
  Country: None (occurrence: None)
  Receive Date: 20111220
  Receipt Date: 20111205
  Transmission Date: 20120403
  Serious: Yes (Other)
  Sender: FDA-Public Use
  Company Number: JP-WATSON-2011-21882

PATIENT
  Age: 68 Year
  Sex: Male

DRUGS (2)
  1. CABERGOLINE [Suspect]
     Indication: PARKINSON'S DISEASE
     Dosage: 1 MG DAILY
  2. LEVODOPA [Suspect]
     Indication: PARKINSON'S DISEASE

REACTIONS (2)
  - HALLUCINATION, VISUAL [None]
  - DELUSION [None]
